FAERS Safety Report 6904165-9 (Version None)
Quarter: 2010Q3

REPORT INFORMATION
  Report Type: 
  Country: None (occurrence: None)
  Receive Date: 20100804
  Receipt Date: 20090323
  Transmission Date: 20110219
  Serious: No
  Sender: FDA-Public Use
  Company Number: US-PFIZER INC-2009166189

PATIENT
  Sex: Female
  Weight: 72.6 kg

DRUGS (5)
  1. LYRICA [Suspect]
     Indication: FIBROMYALGIA
     Dosage: 75 MG, 2X/DAY
     Route: 048
     Dates: start: 20090115
  2. LEXAPRO [Concomitant]
     Dosage: UNK
  3. CLONAZEPAM [Concomitant]
     Dosage: UNK
  4. ACETYLSALICYLIC ACID [Concomitant]
     Dosage: UNK
  5. LOVAZA [Concomitant]
     Dosage: UNK

REACTIONS (3)
  - DIZZINESS [None]
  - FEELING ABNORMAL [None]
  - FEELING DRUNK [None]
